FAERS Safety Report 4538492-X (Version None)
Quarter: 2004Q4

REPORT INFORMATION
  Report Type: 
  Country: None (occurrence: None)
  Receive Date: 20041221
  Receipt Date: 20041207
  Transmission Date: 20050328
  Serious: Yes (Disabling, Other)
  Sender: FDA-Public Use
  Company Number: 2004-00846

PATIENT
  Age: 54 Year
  Sex: Female

DRUGS (6)
  1. VELCADE [Suspect]
     Indication: MULTIPLE MYELOMA
     Dosage: 1.30 MG/M2, 2/WEEK
     Dates: end: 20041116
  2. ACYCLOVIR [Concomitant]
  3. ITRACONAZOLE [Concomitant]
  4. OXYCODONE (OXYCODONE) [Concomitant]
  5. RANITIDINE [Concomitant]
  6. OMEPRAZOLE [Concomitant]

REACTIONS (7)
  - ABASIA [None]
  - DROOLING [None]
  - DYSPHAGIA [None]
  - GENERAL PHYSICAL HEALTH DETERIORATION [None]
  - HYPOAESTHESIA [None]
  - PERIPHERAL SENSORY NEUROPATHY [None]
  - SOMNOLENCE [None]
